FAERS Safety Report 5282155-2 (Version None)
Quarter: 2007Q1

REPORT INFORMATION
  Report Type: 
  Country: None (occurrence: None)
  Receive Date: 20070330
  Receipt Date: 20070320
  Transmission Date: 20070707
  Serious: Yes (Hospitalization, Other)
  Sender: FDA-Public Use
  Company Number: US-PFIZER INC-2006155142

PATIENT
  Sex: Female

DRUGS (1)
  1. TIKOSYN [Suspect]
     Indication: ATRIAL FIBRILLATION

REACTIONS (5)
  - ATRIAL FIBRILLATION [None]
  - CONDITION AGGRAVATED [None]
  - DIZZINESS [None]
  - HEADACHE [None]
  - UNEVALUABLE EVENT [None]
